FAERS Safety Report 14699330 (Version 1)
Quarter: 2018Q1

REPORT INFORMATION
  Report Type: Spontaneous
  Country: US (occurrence: US)
  Receive Date: 20180330
  Receipt Date: 20180330
  Transmission Date: 20180509
  Serious: No
  Sender: FDA-Public Use
  Company Number: US-009507513-1803USA012310

PATIENT
  Sex: Female
  Weight: 51 kg

DRUGS (1)
  1. NUVARING [Suspect]
     Active Substance: ETHINYL ESTRADIOL\ETONOGESTREL
     Indication: CONTRACEPTION
     Dosage: 1 RING EVERY 3 WEEKS
     Route: 067

REACTIONS (3)
  - Discomfort [Unknown]
  - Device expulsion [Recovered/Resolved]
  - Product quality issue [Unknown]
